FAERS Safety Report 11178944 (Version 3)
Quarter: 2020Q2

REPORT INFORMATION
  Report Type: Spontaneous
  Country: DE (occurrence: DE)
  Receive Date: 20150610
  Receipt Date: 20200501
  Transmission Date: 20200713
  Serious: Yes (Congenital Anomaly, Other)
  Sender: FDA-Public Use
  Company Number: DE-MYLANLABS-2015M1017658

PATIENT
  Age: 1 Day
  Sex: Male
  Weight: 2.87 kg

DRUGS (5)
  1. ASPIRIN                            /00002701/ [Concomitant]
     Active Substance: ASPIRIN
     Indication: FACTOR V DEFICIENCY
     Dosage: 100 MG, ONCE DAILY (QD)/0. - 38.2. GESTATIONAL WEEK
     Route: 064
     Dates: start: 20131123, end: 20140818
  2. TOPIRAMATE. [Suspect]
     Active Substance: TOPIRAMATE
     Indication: EPILEPSY
     Dosage: 25 MG, ONCE DAILY (QD)/0. - 38.2. GESTATIONAL WEEK
     Route: 064
     Dates: start: 20131123, end: 20140818
  3. FERRIC SULFATE [Concomitant]
     Active Substance: FERRIC SULFATE
     Indication: IRON DEFICIENCY ANAEMIA
     Dosage: TRIMESTER: 2ND PLUS 3RD
     Route: 064
  4. JODID [Concomitant]
     Active Substance: IODINE
     Indication: IODINE DEFICIENCY
     Dosage: TRIMESTER: UNKNOWN TRIMESTER
     Route: 064
  5. LEVETIRACETAM. [Suspect]
     Active Substance: LEVETIRACETAM
     Indication: EPILEPSY
     Dosage: 500 MG, 2X/DAY (BID)/0. - 38.2. GESTATIONAL WEEK
     Route: 064
     Dates: start: 20131123, end: 20140818

REACTIONS (2)
  - Foetal exposure during pregnancy [Recovered/Resolved]
  - Dysmorphism [Not Recovered/Not Resolved]

NARRATIVE: CASE EVENT DATE: 20131207
